FAERS Safety Report 5208577-3 (Version None)
Quarter: 2006Q4

REPORT INFORMATION
  Report Type: 
  Country: None (occurrence: None)
  Receive Date: 20061027
  Receipt Date: 20051206
  Transmission Date: 20070319
  Serious: Yes (Other)
  Sender: FDA-Public Use
  Company Number: HQWYE661630JUL04

PATIENT
  Age: 42 Year
  Sex: Female
  Weight: 64.92 kg

DRUGS (3)
  1. PREMARIN [Suspect]
     Indication: HORMONE REPLACEMENT THERAPY
  2. ESTRACE [Suspect]
     Indication: DRUG USE FOR UNKNOWN INDICATION
  3. PROVERA [Suspect]
     Indication: DRUG USE FOR UNKNOWN INDICATION

REACTIONS (1)
  - BREAST CANCER [None]
